FAERS Safety Report 11384374 (Version 1)
Quarter: 2015Q3

REPORT INFORMATION
  Report Type: Spontaneous
  Country: US (occurrence: US)
  Receive Date: 20150811
  Receipt Date: 20150811
  Transmission Date: 20151125
  Serious: No
  Sender: FDA-Public Use
  Company Number: US-ELI_LILLY_AND_COMPANY-US201012005690

PATIENT
  Sex: Male

DRUGS (2)
  1. TADALAFIL [Suspect]
     Active Substance: TADALAFIL
     Indication: ERECTILE DYSFUNCTION
     Dosage: 20 MG, AS NEEDED
  2. TADALAFIL [Suspect]
     Active Substance: TADALAFIL
     Dosage: 10 MG, UNK

REACTIONS (3)
  - Feeling jittery [Unknown]
  - Nasal congestion [Unknown]
  - Drug ineffective [Unknown]
